FAERS Safety Report 7073617-6 (Version None)
Quarter: 2010Q4

REPORT INFORMATION
  Report Type: 
  Country: None (occurrence: None)
  Receive Date: 20101029
  Receipt Date: 20100719
  Transmission Date: 20110411
  Serious: No
  Sender: FDA-Public Use
  Company Number: A0871160A

PATIENT
  Age: 85 Year
  Sex: Female

DRUGS (8)
  1. ADVAIR DISKUS 100/50 [Suspect]
     Indication: BRONCHITIS
     Dosage: 1PUFF PER DAY
     Route: 055
     Dates: start: 20090101
  2. SALSALATE [Concomitant]
  3. NITROGLYCERIN [Concomitant]
  4. AMLODIPINE [Concomitant]
  5. POTASSIUM CHLORIDE [Concomitant]
  6. VITAMIN D [Concomitant]
  7. XALATAN [Concomitant]
  8. ALBUTEROL [Concomitant]

REACTIONS (4)
  - DRUG ADMINISTRATION ERROR [None]
  - DRUG HYPERSENSITIVITY [None]
  - DYSPNOEA [None]
  - HEART RATE DECREASED [None]
